FAERS Safety Report 9150221 (Version 3)
Quarter: 2013Q3

REPORT INFORMATION
  Report Type: Spontaneous
  Country: NL (occurrence: None)
  Receive Date: 20130129
  Receipt Date: 20130711
  Transmission Date: 20140515
  Serious: Yes (Hospitalization, Other)
  Sender: FDA-Public Use
  Company Number: ACO_33978_2013

PATIENT
  Age: 60 Year
  Sex: Female

DRUGS (6)
  1. FAMPYRA (DALFAMPRIDINE) TABLET, 10 MG [Suspect]
     Indication: GAIT DISTURBANCE
     Route: 048
     Dates: start: 20120801
  2. BETAFERON (INTERFERON BETA-1B) [Concomitant]
  3. SIRDALUD (TIZANIDINE HYDROCHLORIDE) [Concomitant]
  4. AMITRIPTYLINE (AMTRIPTYLINE) [Concomitant]
  5. METOPROLOL (METOPROLOL) [Concomitant]
  6. LERDIP (LERCANIDIPINE HYDROCHLORIDE) [Concomitant]

REACTIONS (3)
  - Cholelithiasis [None]
  - Pancreatitis necrotising [None]
  - Pancreatic pseudocyst [None]
